FAERS Safety Report 4808555-X (Version None)
Quarter: 2005Q4

REPORT INFORMATION
  Report Type: 
  Country: None (occurrence: None)
  Receive Date: 20051025
  Receipt Date: 20050817
  Transmission Date: 20060501
  Serious: Yes (Other)
  Sender: FDA-Public Use
  Company Number: FRPFM-S-20050241

PATIENT
  Age: 2 Year
  Sex: Male

DRUGS (4)
  1. NAVELBINE [Suspect]
     Indication: RHABDOMYOSARCOMA
     Dosage: 9MGM2 CYCLIC
     Route: 042
     Dates: start: 20050301, end: 20050810
  2. ENDOXAN [Suspect]
     Dosage: 14MG PER DAY
     Dates: start: 20050321, end: 20050810
  3. BACTRIM [Concomitant]
     Dates: start: 20040601
  4. MOVICOL [Concomitant]
     Dates: start: 20050301

REACTIONS (5)
  - CHEST PAIN [None]
  - COUGH [None]
  - PRURITUS [None]
  - RASH [None]
  - URTICARIA [None]
